FAERS Safety Report 13139760 (Version 2)
Quarter: 2017Q1

REPORT INFORMATION
  Report Type: Spontaneous
  Country: US (occurrence: US)
  Receive Date: 20170123
  Receipt Date: 20170223
  Transmission Date: 20170428
  Serious: Yes (Other)
  Sender: FDA-Public Use
  Company Number: US-SA-2017SA008856

PATIENT
  Age: 69 Year
  Sex: Female

DRUGS (22)
  1. HUMALOG [Concomitant]
     Active Substance: INSULIN LISPRO
  2. METAMUCIL [Concomitant]
     Active Substance: PLANTAGO SEED
  3. MIRALAX [Concomitant]
     Active Substance: POLYETHYLENE GLYCOL 3350
  4. HYDROCHLOROTHIAZIDE. [Concomitant]
     Active Substance: HYDROCHLOROTHIAZIDE
     Dosage: EVERY OTHER DAY
  5. LANTUS SOLOSTAR [Suspect]
     Active Substance: INSULIN GLARGINE
     Indication: TYPE 2 DIABETES MELLITUS
     Dosage: AT NIGHT
     Route: 065
     Dates: start: 2009
  6. SYSTANE ULTRA [Concomitant]
     Active Substance: POLYETHYLENE GLYCOL 400\PROPYLENE GLYCOL
  7. CLOTRIMAZOLE/BETAMETHASONE [Concomitant]
     Dosage: IF NEEDED
  8. ESTER-C [Concomitant]
     Active Substance: CALCIUM\VITAMINS
     Dosage: 500 MG
     Route: 048
  9. CITRACAL + D [Concomitant]
     Active Substance: CALCIUM CITRATE\VITAMIN D
  10. RESTASIS [Concomitant]
     Active Substance: CYCLOSPORINE
     Dosage: 1 DROP AFTER EVERY 12 HOURS
  11. METHENAMINE HIPPURATE. [Concomitant]
     Active Substance: METHENAMINE HIPPURATE
     Route: 048
  12. SOLOSTAR [Concomitant]
     Active Substance: DEVICE
     Indication: TYPE 2 DIABETES MELLITUS
     Dates: start: 2009
  13. VENLAFAXINE [Concomitant]
     Active Substance: VENLAFAXINE HYDROCHLORIDE
     Dosage: AM AND PM
  14. NEOMYCIN/POLYMYXIN B [Concomitant]
  15. LORAZEPAM. [Concomitant]
     Active Substance: LORAZEPAM
     Dosage: 2 MG
  16. CLINDAMYCIN PHOSPHATE. [Concomitant]
     Active Substance: CLINDAMYCIN PHOSPHATE
     Route: 061
  17. VOLTAREN [Concomitant]
     Active Substance: DICLOFENAC SODIUM
  18. ATORVASTATIN [Concomitant]
     Active Substance: ATORVASTATIN
  19. VITAMIN B12 [Concomitant]
     Active Substance: CYANOCOBALAMIN
  20. CIPRODEX [Concomitant]
     Active Substance: CIPROFLOXACIN HYDROCHLORIDE\DEXAMETHASONE
     Dosage: 5 DROPS FOR EVERY OTHER DAY
  21. ECOTRIN [Concomitant]
     Active Substance: ASPIRIN
  22. LINZESS [Concomitant]
     Active Substance: LINACLOTIDE

REACTIONS (4)
  - Product use issue [Unknown]
  - Blood glucose increased [Not Recovered/Not Resolved]
  - Injection site pain [Unknown]
  - Lung infection [Not Recovered/Not Resolved]
